FAERS Safety Report 17087530 (Version 4)
Quarter: 2020Q1

REPORT INFORMATION
  Report Type: Spontaneous
  Country: US (occurrence: US)
  Receive Date: 20191128
  Receipt Date: 20200203
  Transmission Date: 20200409
  Serious: Yes (Death, Hospitalization)
  Sender: FDA-Public Use
  Company Number: NVSC2019US050022

PATIENT
  Sex: Male

DRUGS (2)
  1. MEKINIST [Suspect]
     Active Substance: TRAMETINIB DIMETHYL SULFOXIDE
     Indication: MALIGNANT MELANOMA
     Dosage: 2 MG, QD
     Route: 048
  2. TAFINLAR [Suspect]
     Active Substance: DABRAFENIB MESYLATE
     Indication: MALIGNANT MELANOMA
     Dosage: 150 MG, Q12H
     Route: 048

REACTIONS (7)
  - Lymphadenopathy [Unknown]
  - Muscle disorder [Unknown]
  - Peripheral swelling [Not Recovered/Not Resolved]
  - Death [Fatal]
  - Infection [Unknown]
  - Product dose omission [Recovered/Resolved with Sequelae]
  - Dizziness [Recovered/Resolved with Sequelae]
